FAERS Safety Report 6127678-9 (Version None)
Quarter: 2009Q1

REPORT INFORMATION
  Report Type: 
  Country: None (occurrence: None)
  Receive Date: 20090323
  Receipt Date: 20081006
  Transmission Date: 20090719
  Serious: No
  Sender: FDA-Public Use
  Company Number: US-ABBOTT-08P-163-0480051-00

PATIENT
  Sex: Male
  Weight: 69.916 kg

DRUGS (2)
  1. ERYTHROMYCIN ETHYLSUCCINATE [Suspect]
     Indication: BRONCHITIS
     Route: 048
  2. ERYTHROMYCIN [Suspect]
     Indication: BRONCHITIS
     Route: 042
     Dates: start: 19900101, end: 19900101

REACTIONS (2)
  - FUNGAL INFECTION [None]
  - VOMITING [None]
